FAERS Safety Report 4331139-7 (Version None)
Quarter: 2004Q1

REPORT INFORMATION
  Report Type: 
  Country: None (occurrence: None)
  Receive Date: 20040331
  Receipt Date: 20040322
  Transmission Date: 20041129
  Serious: Yes (Other)
  Sender: FDA-Public Use
  Company Number: US-JNJFOC-20040304914

PATIENT
  Age: 68 Year
  Sex: Male

DRUGS (17)
  1. NATRECOR [Suspect]
     Indication: CARDIAC FAILURE CONGESTIVE
     Dosage: INTRAVENOUS
     Route: 042
     Dates: start: 20040318, end: 20040319
  2. OXYCONTIN [Concomitant]
  3. PREDNISONE [Concomitant]
  4. THIAMINE (THIAMINE) [Concomitant]
  5. ACCUPRIL [Concomitant]
  6. METOPROLOL (METOPROLOL) [Concomitant]
  7. IMDUR [Concomitant]
  8. GLUCOPHAGE [Concomitant]
  9. GLUCOTROL [Concomitant]
  10. BUSPAR [Concomitant]
  11. KEFLEX [Concomitant]
  12. FRAGMIN [Concomitant]
  13. INSPRA (ALL OTHER THERAPEUTIC PRODUCTS) [Concomitant]
  14. DIGOXIN [Concomitant]
  15. FOLIC ACID [Concomitant]
  16. LASIX [Concomitant]
  17. NTG SL (GLYCERYL TRINITRATE) [Concomitant]

REACTIONS (1)
  - BLINDNESS [None]
